FAERS Safety Report 6757833-6 (Version None)
Quarter: 2010Q2

REPORT INFORMATION
  Report Type: 
  Country: None (occurrence: None)
  Receive Date: 20100607
  Receipt Date: 20100531
  Transmission Date: 20101027
  Serious: Yes (Life-Threatening, Hospitalization)
  Sender: FDA-Public Use
  Company Number: PHHY2010CA34836

PATIENT
  Sex: Female

DRUGS (5)
  1. CLOZARIL [Suspect]
     Indication: SCHIZOPHRENIA
     Dosage: UNK,UNK
     Dates: start: 20100429, end: 20100527
  2. CLOZARIL [Suspect]
     Dosage: 300 MG, QD AT BED TIME
     Route: 048
     Dates: start: 20100505, end: 20100526
  3. RISPERIDONE [Concomitant]
     Dosage: 6 MG, QHS
     Route: 048
     Dates: start: 20100301
  4. CLONAZEPAM [Concomitant]
     Dosage: 21 MG, QD
  5. PAXIL [Concomitant]
     Dosage: 20 MG EVERY MORNING
     Route: 048

REACTIONS (12)
  - COUGH [None]
  - DIZZINESS [None]
  - EOSINOPHIL COUNT INCREASED [None]
  - INFLUENZA [None]
  - LEUKOCYTOSIS [None]
  - MALAISE [None]
  - MYALGIA [None]
  - MYOCARDITIS [None]
  - NEUTROPHIL COUNT INCREASED [None]
  - OROPHARYNGEAL PAIN [None]
  - PERICARDITIS [None]
  - WHITE BLOOD CELL COUNT INCREASED [None]
